FAERS Safety Report 16977505 (Version 7)
Quarter: 2020Q1

REPORT INFORMATION
  Report Type: Report from Study
  Country: GB (occurrence: GB)
  Receive Date: 20191031
  Receipt Date: 20200311
  Transmission Date: 20200409
  Serious: Yes (Hospitalization)
  Sender: FDA-Public Use
  Company Number: GB-ROCHE-2405149

PATIENT
  Age: 56 Year
  Sex: Male
  Weight: 104.4 kg

DRUGS (15)
  1. OCRELIZUMAB. [Suspect]
     Active Substance: OCRELIZUMAB
     Dosage: 04/MAR/2016, 05/AUG/2016, 19/AUG/2016
     Route: 042
     Dates: start: 20160219
  2. ASPIRIN [ACETYLSALICYLIC ACID] [Concomitant]
     Active Substance: ASPIRIN
     Route: 065
     Dates: start: 20191025
  3. OCRELIZUMAB. [Suspect]
     Active Substance: OCRELIZUMAB
     Indication: PRIMARY PROGRESSIVE MULTIPLE SCLEROSIS
     Dosage: 14/DEC/2012, 17/MAY/2013, 31/MAY/2013, 01/NOV/2013, 15/NOV/2013, 17/APR/2014, 02/MAY/2014, 03/OCT/20
     Route: 042
     Dates: start: 20121130, end: 20160218
  4. CLOBETASONE BUTYRATE [Concomitant]
     Active Substance: CLOBETASONE BUTYRATE
     Indication: ECZEMA
     Route: 065
     Dates: start: 20170404
  5. LISINOPRIL. [Concomitant]
     Active Substance: LISINOPRIL
     Indication: HYPERTENSION
     Route: 065
     Dates: start: 20110501
  6. TAMSULOSIN [Concomitant]
     Active Substance: TAMSULOSIN
     Route: 065
     Dates: start: 20190930, end: 20191016
  7. OCRELIZUMAB. [Suspect]
     Active Substance: OCRELIZUMAB
     Dosage: 17/OCT/2014
     Route: 042
  8. INFLUENZA VACCINE [Concomitant]
     Active Substance: INFLUENZA VIRUS VACCINE
     Route: 065
     Dates: start: 20191014, end: 20191014
  9. PARACETAMOL [Concomitant]
     Active Substance: ACETAMINOPHEN
     Dosage: 30/NOV/2012, 14/DEC/2012, 17/MAY/2013, 31/MAY/2013, 01/NOV/2013, 15/NOV/2013, 17/APR/2014, 02/MAY/20
     Route: 065
  10. SIMVASTATIN. [Concomitant]
     Active Substance: SIMVASTATIN
     Indication: BLOOD CHOLESTEROL INCREASED
     Route: 065
     Dates: start: 20101101
  11. OCRELIZUMAB. [Suspect]
     Active Substance: OCRELIZUMAB
     Indication: PRIMARY PROGRESSIVE MULTIPLE SCLEROSIS
     Dosage: 20/JAN/2017, 14/JUL/2017, 18/DEC/2017, 03/DEC/2018, 08/JUN/2018, 10/MAY/2019 AND 25/OCT/2019?TWO IV
     Route: 042
  12. CITALOPRAM [Concomitant]
     Active Substance: CITALOPRAM HYDROBROMIDE
     Indication: DEPRESSED MOOD
     Dosage: NEXT DOSE FROM 05/JUL/2017 TO 25/AUG/2018, 10 MG
     Route: 065
     Dates: start: 20130514, end: 20170705
  13. DOCUSATE [Concomitant]
     Active Substance: DOCUSATE
     Indication: CONSTIPATION
     Route: 065
     Dates: start: 20191022, end: 20191025
  14. CHLORPHENIRAMINE [CHLORPHENAMINE] [Concomitant]
     Active Substance: CHLORPHENIRAMINE
     Dosage: 30/NOV/2012, 14/DEC/2012, 17/MAY/2013, 31/MAY/2013, 01/NOV/2013, 15/NOV/2013, 17/APR/2014, 02/MAY/20
     Route: 065
  15. METHYLPREDNISOLONE. [Concomitant]
     Active Substance: METHYLPREDNISOLONE
     Dosage: 30/NOV/2012, 14/DEC/2012, 17/MAY/2013, 31/MAY/2013, 01/NOV/2013, 15/NOV/2013, 17/APR/2014, 02/MAY/20
     Route: 065

REACTIONS (2)
  - Urinary tract infection [Recovered/Resolved]
  - Urosepsis [Recovered/Resolved with Sequelae]

NARRATIVE: CASE EVENT DATE: 20190825
